FAERS Safety Report 9506373 (Version 1)
Quarter: 2013Q1

REPORT INFORMATION
  Report Type: Spontaneous
  Country: US (occurrence: None)
  Receive Date: 20130305
  Receipt Date: 20130305
  Transmission Date: 20140127
  Serious: Yes (Other)
  Sender: FDA-Public Use
  Company Number: 163-21880-12051250

PATIENT
  Age: 68 Year
  Sex: Male

DRUGS (1)
  1. REVLIMID (LENALIDOMIDE) (25 MILLIGRAM, CAPSULES) [Suspect]
     Indication: PLASMA CELL MYELOMA
     Route: 048
     Dates: start: 20111221

REACTIONS (7)
  - Fatigue [None]
  - Rash macular [None]
  - Depression [None]
  - Pain in extremity [None]
  - Pyrexia [None]
  - Dry skin [None]
  - Pain [None]
